FAERS Safety Report 13861929 (Version 5)
Quarter: 2019Q1

REPORT INFORMATION
  Report Type: Report from Study
  Country: US (occurrence: US)
  Receive Date: 20170811
  Receipt Date: 20190205
  Transmission Date: 20190417
  Serious: Yes (Hospitalization, Other)
  Sender: FDA-Public Use
  Company Number: US-ACTELION-A-US2016-144245

PATIENT
  Age: 49 Year
  Sex: Female

DRUGS (11)
  1. ADCIRCA [Concomitant]
     Active Substance: TADALAFIL
  2. MULTIVITAMIN [Concomitant]
     Active Substance: VITAMINS
  3. BUMETANIDE. [Concomitant]
     Active Substance: BUMETANIDE
  4. TYVASO [Concomitant]
     Active Substance: TREPROSTINIL
  5. XANAX [Concomitant]
     Active Substance: ALPRAZOLAM
  6. OPSUMIT [Suspect]
     Active Substance: MACITENTAN
     Indication: PULMONARY ARTERIAL HYPERTENSION
     Dosage: 10 MG, QD
     Route: 048
     Dates: start: 20160826
  7. AZITHROMYCIN ANHYDROUS. [Concomitant]
     Active Substance: AZITHROMYCIN ANHYDROUS
     Dosage: UNK
     Dates: end: 20170804
  8. ALBUTEROL. [Concomitant]
     Active Substance: ALBUTEROL
     Dosage: UNK
     Dates: end: 20170804
  9. SPIRONOLACTONE. [Concomitant]
     Active Substance: SPIRONOLACTONE
  10. PREDNISONE. [Concomitant]
     Active Substance: PREDNISONE
     Dosage: UNK
     Dates: end: 20170804
  11. PROZAC [Concomitant]
     Active Substance: FLUOXETINE HYDROCHLORIDE

REACTIONS (16)
  - Weight increased [Recovered/Resolved]
  - Anxiety [Recovered/Resolved]
  - Dyspnoea [Recovered/Resolved]
  - Fluid retention [Recovered/Resolved]
  - Bronchitis [Recovering/Resolving]
  - Fatigue [Unknown]
  - Cough [Recovering/Resolving]
  - Asthenia [Unknown]
  - Pulmonary oedema [Unknown]
  - Oedema [Recovering/Resolving]
  - Dyspnoea exertional [Recovered/Resolved]
  - Cardiac failure [Recovered/Resolved]
  - Condition aggravated [Recovered/Resolved]
  - General physical health deterioration [Unknown]
  - Chest pain [Recovered/Resolved]
  - Chest discomfort [Recovered/Resolved]

NARRATIVE: CASE EVENT DATE: 20161014
